FAERS Safety Report 23856215 (Version 3)
Quarter: 2025Q3

REPORT INFORMATION
  Report Type: Spontaneous
  Country: CA (occurrence: CA)
  Receive Date: 20240515
  Receipt Date: 20250915
  Transmission Date: 20251020
  Serious: Yes (Death, Life-Threatening, Hospitalization, Disabling, Other)
  Sender: SANDOZ
  Company Number: CA-002147023-NVSC2024CA101174

PATIENT
  Age: 50 Year
  Sex: Female
  Weight: 68 kg

DRUGS (114)
  1. COSENTYX [Suspect]
     Active Substance: SECUKINUMAB
     Indication: Psoriatic arthropathy
     Route: 016
  2. COSENTYX [Suspect]
     Active Substance: SECUKINUMAB
     Indication: Rheumatoid arthritis
     Route: 065
  3. COSENTYX [Suspect]
     Active Substance: SECUKINUMAB
     Route: 065
  4. COSENTYX [Suspect]
     Active Substance: SECUKINUMAB
     Route: 065
  5. COSENTYX [Suspect]
     Active Substance: SECUKINUMAB
     Route: 065
  6. DICLOFENAC SODIUM [Suspect]
     Active Substance: DICLOFENAC SODIUM
     Route: 065
  7. DICLOFENAC SODIUM [Suspect]
     Active Substance: DICLOFENAC SODIUM
     Route: 058
  8. DICLOFENAC SODIUM [Suspect]
     Active Substance: DICLOFENAC SODIUM
     Indication: Inflammation
     Route: 065
  9. DICLOFENAC SODIUM [Suspect]
     Active Substance: DICLOFENAC SODIUM
     Indication: Osteoarthritis
     Route: 065
  10. DICLOFENAC SODIUM [Suspect]
     Active Substance: DICLOFENAC SODIUM
     Indication: Rheumatoid arthritis
     Route: 065
  11. DICLOFENAC SODIUM [Suspect]
     Active Substance: DICLOFENAC SODIUM
     Route: 065
  12. DICLOFENAC SODIUM [Suspect]
     Active Substance: DICLOFENAC SODIUM
     Route: 065
  13. DICLOFENAC SODIUM [Suspect]
     Active Substance: DICLOFENAC SODIUM
     Route: 065
  14. PLAQUENIL [Suspect]
     Active Substance: HYDROXYCHLOROQUINE SULFATE
     Route: 048
  15. PLAQUENIL [Suspect]
     Active Substance: HYDROXYCHLOROQUINE SULFATE
     Route: 048
  16. PLAQUENIL [Suspect]
     Active Substance: HYDROXYCHLOROQUINE SULFATE
     Indication: Rheumatoid arthritis
     Route: 065
  17. PLAQUENIL [Suspect]
     Active Substance: HYDROXYCHLOROQUINE SULFATE
     Route: 065
  18. PLAQUENIL [Suspect]
     Active Substance: HYDROXYCHLOROQUINE SULFATE
     Route: 065
  19. PREDNISONE [Suspect]
     Active Substance: PREDNISONE
     Indication: Rheumatoid arthritis
     Route: 065
  20. PREDNISONE [Suspect]
     Active Substance: PREDNISONE
     Route: 065
  21. PREDNISONE [Suspect]
     Active Substance: PREDNISONE
     Route: 048
  22. PREDNISONE [Suspect]
     Active Substance: PREDNISONE
     Route: 048
  23. PREDNISONE [Suspect]
     Active Substance: PREDNISONE
     Route: 065
  24. PREDNISONE [Suspect]
     Active Substance: PREDNISONE
     Route: 016
  25. PREDNISONE [Suspect]
     Active Substance: PREDNISONE
     Route: 048
  26. PREDNISONE [Suspect]
     Active Substance: PREDNISONE
     Indication: Condition aggravated
     Route: 065
  27. PREDNISONE [Suspect]
     Active Substance: PREDNISONE
     Route: 065
  28. PSEUDOEPHEDRINE HYDROCHLORIDE [Suspect]
     Active Substance: PSEUDOEPHEDRINE HYDROCHLORIDE
     Route: 065
  29. PSEUDOEPHEDRINE HYDROCHLORIDE [Suspect]
     Active Substance: PSEUDOEPHEDRINE HYDROCHLORIDE
     Indication: Off label use
     Route: 065
  30. PSEUDOEPHEDRINE HYDROCHLORIDE [Suspect]
     Active Substance: PSEUDOEPHEDRINE HYDROCHLORIDE
     Indication: Rheumatoid arthritis
     Route: 065
  31. QUETIAPINE FUMARATE [Suspect]
     Active Substance: QUETIAPINE FUMARATE
     Route: 042
  32. QUETIAPINE FUMARATE [Suspect]
     Active Substance: QUETIAPINE FUMARATE
     Route: 065
  33. QUETIAPINE FUMARATE [Suspect]
     Active Substance: QUETIAPINE FUMARATE
     Indication: Product used for unknown indication
     Route: 065
  34. RITUXIMAB [Suspect]
     Active Substance: RITUXIMAB
     Route: 016
  35. RITUXIMAB [Suspect]
     Active Substance: RITUXIMAB
     Route: 016
  36. RITUXIMAB [Suspect]
     Active Substance: RITUXIMAB
     Indication: Rheumatoid arthritis
     Route: 042
  37. RITUXIMAB [Suspect]
     Active Substance: RITUXIMAB
     Route: 042
  38. RITUXIMAB [Suspect]
     Active Substance: RITUXIMAB
     Route: 058
  39. RITUXIMAB [Suspect]
     Active Substance: RITUXIMAB
     Route: 065
  40. RITUXIMAB [Suspect]
     Active Substance: RITUXIMAB
     Route: 065
  41. RITUXIMAB [Suspect]
     Active Substance: RITUXIMAB
     Route: 065
  42. RAMIPRIL [Suspect]
     Active Substance: RAMIPRIL
     Indication: Product used for unknown indication
     Route: 065
  43. CETIRIZINE HYDROCHLORIDE [Suspect]
     Active Substance: CETIRIZINE HYDROCHLORIDE
     Route: 048
  44. CETIRIZINE HYDROCHLORIDE [Suspect]
     Active Substance: CETIRIZINE HYDROCHLORIDE
     Route: 065
  45. CETIRIZINE HYDROCHLORIDE [Suspect]
     Active Substance: CETIRIZINE HYDROCHLORIDE
     Indication: Rheumatoid arthritis
     Route: 065
  46. CETIRIZINE HYDROCHLORIDE [Suspect]
     Active Substance: CETIRIZINE HYDROCHLORIDE
     Route: 065
  47. CETIRIZINE HYDROCHLORIDE [Suspect]
     Active Substance: CETIRIZINE HYDROCHLORIDE
     Route: 065
  48. CETIRIZINE HYDROCHLORIDE [Suspect]
     Active Substance: CETIRIZINE HYDROCHLORIDE
     Route: 065
  49. CETIRIZINE HYDROCHLORIDE [Suspect]
     Active Substance: CETIRIZINE HYDROCHLORIDE
     Indication: Off label use
     Route: 065
  50. CETIRIZINE HYDROCHLORIDE [Suspect]
     Active Substance: CETIRIZINE HYDROCHLORIDE
     Indication: Urticaria
     Route: 065
  51. CETIRIZINE HYDROCHLORIDE [Suspect]
     Active Substance: CETIRIZINE HYDROCHLORIDE
     Route: 065
  52. CETIRIZINE HYDROCHLORIDE\PSEUDOEPHEDRINE HYDROCHLORIDE [Suspect]
     Active Substance: CETIRIZINE HYDROCHLORIDE\PSEUDOEPHEDRINE HYDROCHLORIDE
     Route: 048
  53. CETIRIZINE HYDROCHLORIDE\PSEUDOEPHEDRINE HYDROCHLORIDE [Suspect]
     Active Substance: CETIRIZINE HYDROCHLORIDE\PSEUDOEPHEDRINE HYDROCHLORIDE
     Indication: Off label use
     Route: 065
  54. CETIRIZINE HYDROCHLORIDE\PSEUDOEPHEDRINE HYDROCHLORIDE [Suspect]
     Active Substance: CETIRIZINE HYDROCHLORIDE\PSEUDOEPHEDRINE HYDROCHLORIDE
     Route: 065
  55. CETIRIZINE HYDROCHLORIDE\PSEUDOEPHEDRINE HYDROCHLORIDE [Suspect]
     Active Substance: CETIRIZINE HYDROCHLORIDE\PSEUDOEPHEDRINE HYDROCHLORIDE
     Indication: Urticaria
     Route: 065
  56. CETIRIZINE HYDROCHLORIDE\PSEUDOEPHEDRINE HYDROCHLORIDE [Suspect]
     Active Substance: CETIRIZINE HYDROCHLORIDE\PSEUDOEPHEDRINE HYDROCHLORIDE
     Route: 065
  57. CETIRIZINE HYDROCHLORIDE\PSEUDOEPHEDRINE HYDROCHLORIDE [Suspect]
     Active Substance: CETIRIZINE HYDROCHLORIDE\PSEUDOEPHEDRINE HYDROCHLORIDE
     Route: 048
  58. CETIRIZINE HYDROCHLORIDE\PSEUDOEPHEDRINE HYDROCHLORIDE [Suspect]
     Active Substance: CETIRIZINE HYDROCHLORIDE\PSEUDOEPHEDRINE HYDROCHLORIDE
     Indication: Rheumatoid arthritis
     Route: 065
  59. CETIRIZINE HYDROCHLORIDE\PSEUDOEPHEDRINE HYDROCHLORIDE [Suspect]
     Active Substance: CETIRIZINE HYDROCHLORIDE\PSEUDOEPHEDRINE HYDROCHLORIDE
     Route: 065
  60. CETIRIZINE HYDROCHLORIDE\PSEUDOEPHEDRINE HYDROCHLORIDE [Suspect]
     Active Substance: CETIRIZINE HYDROCHLORIDE\PSEUDOEPHEDRINE HYDROCHLORIDE
     Route: 065
  61. REMICADE [Suspect]
     Active Substance: INFLIXIMAB
     Route: 042
  62. REMICADE [Suspect]
     Active Substance: INFLIXIMAB
     Route: 042
  63. REMICADE [Suspect]
     Active Substance: INFLIXIMAB
     Route: 042
  64. REMICADE [Suspect]
     Active Substance: INFLIXIMAB
     Indication: Colitis ulcerative
     Route: 065
  65. REMICADE [Suspect]
     Active Substance: INFLIXIMAB
     Indication: Rheumatoid arthritis
     Route: 065
  66. SIMPONI [Suspect]
     Active Substance: GOLIMUMAB
     Route: 058
  67. SIMPONI [Suspect]
     Active Substance: GOLIMUMAB
     Route: 058
  68. SIMPONI [Suspect]
     Active Substance: GOLIMUMAB
     Route: 040
  69. SIMPONI [Suspect]
     Active Substance: GOLIMUMAB
     Route: 058
  70. SIMPONI [Suspect]
     Active Substance: GOLIMUMAB
     Route: 058
  71. SIMPONI [Suspect]
     Active Substance: GOLIMUMAB
     Route: 058
  72. SIMPONI [Suspect]
     Active Substance: GOLIMUMAB
     Route: 058
  73. SIMPONI [Suspect]
     Active Substance: GOLIMUMAB
     Indication: Rheumatoid arthritis
     Route: 065
  74. SOLU-MEDROL [Suspect]
     Active Substance: METHYLPREDNISOLONE SODIUM SUCCINATE
     Indication: Product used for unknown indication
     Route: 065
  75. STELARA [Suspect]
     Active Substance: USTEKINUMAB
     Route: 042
  76. STELARA [Suspect]
     Active Substance: USTEKINUMAB
     Route: 058
  77. STELARA [Suspect]
     Active Substance: USTEKINUMAB
     Route: 042
  78. STELARA [Suspect]
     Active Substance: USTEKINUMAB
     Route: 042
  79. STELARA [Suspect]
     Active Substance: USTEKINUMAB
     Route: 058
  80. STELARA [Suspect]
     Active Substance: USTEKINUMAB
     Indication: Rheumatoid arthritis
     Route: 065
  81. SULFASALAZINE [Suspect]
     Active Substance: SULFASALAZINE
     Route: 048
  82. SULFASALAZINE [Suspect]
     Active Substance: SULFASALAZINE
     Route: 048
  83. SULFASALAZINE [Suspect]
     Active Substance: SULFASALAZINE
     Route: 048
  84. SULFASALAZINE [Suspect]
     Active Substance: SULFASALAZINE
     Route: 048
  85. SULFASALAZINE [Suspect]
     Active Substance: SULFASALAZINE
     Route: 065
  86. SULFASALAZINE [Suspect]
     Active Substance: SULFASALAZINE
     Route: 065
  87. SULFASALAZINE [Suspect]
     Active Substance: SULFASALAZINE
     Route: 048
  88. SULFASALAZINE [Suspect]
     Active Substance: SULFASALAZINE
     Route: 065
  89. SULFASALAZINE [Suspect]
     Active Substance: SULFASALAZINE
     Indication: Rheumatoid arthritis
     Route: 065
  90. SULFASALAZINE [Suspect]
     Active Substance: SULFASALAZINE
     Route: 065
  91. PANTOPRAZOLE MAGNESIUM [Suspect]
     Active Substance: PANTOPRAZOLE MAGNESIUM
     Route: 016
  92. PANTOPRAZOLE MAGNESIUM [Suspect]
     Active Substance: PANTOPRAZOLE MAGNESIUM
     Indication: Product used for unknown indication
     Route: 065
  93. TRIAMCINOLONE ACETONIDE [Suspect]
     Active Substance: TRIAMCINOLONE ACETONIDE
     Indication: Rheumatoid arthritis
     Route: 065
  94. VITAMIN C [Suspect]
     Active Substance: ASCORBIC ACID
     Route: 065
  95. VITAMIN C [Suspect]
     Active Substance: ASCORBIC ACID
     Indication: Product used for unknown indication
     Route: 065
  96. VOLTAREN [Suspect]
     Active Substance: DICLOFENAC SODIUM
     Indication: Product used for unknown indication
     Route: 065
  97. PREDNISONE [Suspect]
     Active Substance: PREDNISONE
     Indication: Rheumatoid arthritis
     Route: 048
  98. XELJANZ [Suspect]
     Active Substance: TOFACITINIB CITRATE
     Indication: Psoriatic arthropathy
     Route: 065
  99. XELJANZ [Suspect]
     Active Substance: TOFACITINIB CITRATE
     Route: 065
  100. XELJANZ [Suspect]
     Active Substance: TOFACITINIB CITRATE
     Route: 065
  101. XELJANZ [Suspect]
     Active Substance: TOFACITINIB CITRATE
     Route: 016
  102. XELJANZ [Suspect]
     Active Substance: TOFACITINIB CITRATE
     Route: 048
  103. XELJANZ [Suspect]
     Active Substance: TOFACITINIB CITRATE
     Route: 048
  104. XELJANZ [Suspect]
     Active Substance: TOFACITINIB CITRATE
     Route: 048
  105. XELJANZ [Suspect]
     Active Substance: TOFACITINIB CITRATE
     Route: 048
  106. XELJANZ [Suspect]
     Active Substance: TOFACITINIB CITRATE
     Route: 065
  107. XELJANZ [Suspect]
     Active Substance: TOFACITINIB CITRATE
     Route: 065
  108. XELJANZ [Suspect]
     Active Substance: TOFACITINIB CITRATE
     Route: 032
  109. XELJANZ [Suspect]
     Active Substance: TOFACITINIB CITRATE
     Indication: Rheumatoid arthritis
     Route: 065
  110. XELJANZ [Suspect]
     Active Substance: TOFACITINIB CITRATE
     Route: 065
  111. XELJANZ [Suspect]
     Active Substance: TOFACITINIB CITRATE
     Route: 065
  112. XELJANZ [Suspect]
     Active Substance: TOFACITINIB CITRATE
     Route: 065
  113. XELJANZ [Suspect]
     Active Substance: TOFACITINIB CITRATE
     Route: 065
  114. MELOXICAM [Concomitant]
     Active Substance: MELOXICAM
     Indication: Product used for unknown indication
     Route: 065

REACTIONS (22)
  - Rheumatic fever [Fatal]
  - Swollen joint count [Fatal]
  - Swollen joint count increased [Fatal]
  - Systemic lupus erythematosus [Fatal]
  - Tender joint count [Fatal]
  - Type 2 diabetes mellitus [Fatal]
  - Urticaria [Fatal]
  - Vomiting [Fatal]
  - Rheumatoid arthritis [Fatal]
  - Weight increased [Fatal]
  - Wheezing [Fatal]
  - Wound [Fatal]
  - Rheumatoid factor positive [Fatal]
  - Road traffic accident [Fatal]
  - Sciatica [Fatal]
  - Sinusitis [Fatal]
  - Sleep disorder due to general medical condition, hypersomnia type [Fatal]
  - Stomatitis [Fatal]
  - Swelling [Fatal]
  - Therapeutic product effect decreased [Fatal]
  - Therapy non-responder [Fatal]
  - Treatment failure [Fatal]
